FAERS Safety Report 15054077 (Version 3)
Quarter: 2018Q4

REPORT INFORMATION
  Report Type: Spontaneous
  Country: US (occurrence: US)
  Receive Date: 20180622
  Receipt Date: 20181218
  Transmission Date: 20190204
  Serious: Yes (Disabling, Other)
  Sender: FDA-Public Use
  Company Number: US-OTSUKA-2018_015380

PATIENT
  Sex: Female

DRUGS (2)
  1. ARIPIPRAZOLE. [Concomitant]
     Active Substance: ARIPIPRAZOLE
     Indication: PRODUCT USED FOR UNKNOWN INDICATION
     Dosage: UNK
     Route: 065
     Dates: end: 20180215
  2. ABILIFY [Suspect]
     Active Substance: ARIPIPRAZOLE
     Indication: PSYCHOTIC DISORDER
     Dosage: 5 MG}10MG}20MG
     Route: 065

REACTIONS (19)
  - Sexually transmitted disease [Unknown]
  - Compulsive shopping [Not Recovered/Not Resolved]
  - Gambling disorder [Recovered/Resolved]
  - Social problem [Unknown]
  - Personal relationship issue [Unknown]
  - Injury [Unknown]
  - Mental impairment [Unknown]
  - Emotional distress [Unknown]
  - Fear [Unknown]
  - Pain [Unknown]
  - Anxiety [Unknown]
  - Product use in unapproved indication [Unknown]
  - Disability [Unknown]
  - Obsessive-compulsive disorder [Not Recovered/Not Resolved]
  - Suicidal ideation [Not Recovered/Not Resolved]
  - Condition aggravated [Recovered/Resolved]
  - Economic problem [Unknown]
  - Anhedonia [Unknown]
  - Suicide attempt [Not Recovered/Not Resolved]

NARRATIVE: CASE EVENT DATE: 2012
